FAERS Safety Report 4414802-9 (Version None)
Quarter: 2004Q3

REPORT INFORMATION
  Report Type: 
  Country: None (occurrence: None)
  Receive Date: 20040804
  Receipt Date: 20031015
  Transmission Date: 20050211
  Serious: No
  Sender: FDA-Public Use
  Company Number: US-BRISTOL-MYERS SQUIBB COMPANY-12412144

PATIENT
  Age: 62 Year
  Sex: Male
  Weight: 94 kg

DRUGS (4)
  1. GLUCOVANCE [Suspect]
     Indication: DIABETES MELLITUS
     Dosage: DOSAGE FORM = 5/500MG
     Route: 048
  2. GLUCOVANCE [Suspect]
     Dosage: DOSAGE FORM = 5/500MG
     Route: 048
  3. LOTENSIN [Concomitant]
  4. PRAVACHOL [Concomitant]

REACTIONS (1)
  - WEIGHT INCREASED [None]
